FAERS Safety Report 26142568 (Version 1)
Quarter: 2025Q4

REPORT INFORMATION
  Report Type: Spontaneous
  Country: CA (occurrence: CA)
  Receive Date: 20251210
  Receipt Date: 20251210
  Transmission Date: 20260118
  Serious: Yes (Death, Life-Threatening, Hospitalization, Disabling, Other)
  Sender: Haleon PLC
  Company Number: CA-HALEON-2278360

PATIENT
  Age: 44 Year
  Sex: Female

DRUGS (304)
  1. DICLOFENAC [Suspect]
     Active Substance: DICLOFENAC
     Indication: Product used for unknown indication
     Dosage: DOSE FORM: UNKNOWN, ROUTE: UNKNOWN
  2. ADVIL [Suspect]
     Active Substance: IBUPROFEN
     Indication: Product used for unknown indication
     Dosage: ROUTE: UNKNOWN
  3. DICLOFENAC POTASSIUM [Suspect]
     Active Substance: DICLOFENAC POTASSIUM
     Indication: Product used for unknown indication
     Dosage: ROUTE: OTHER
  4. DICLOFENAC POTASSIUM [Suspect]
     Active Substance: DICLOFENAC POTASSIUM
  5. DICLOFENAC POTASSIUM [Suspect]
     Active Substance: DICLOFENAC POTASSIUM
  6. DICLOFENAC POTASSIUM [Suspect]
     Active Substance: DICLOFENAC POTASSIUM
     Dosage: ROUTE: UNKNOWN
  7. DICLOFENAC [Suspect]
     Active Substance: DICLOFENAC
     Indication: Product used for unknown indication
     Dosage: ROUTE: UNKNOWN
  8. DICLOFENAC [Suspect]
     Active Substance: DICLOFENAC
     Dosage: ROUTE: UNKNOWN
  9. ACETAMINOPHEN [Suspect]
     Active Substance: ACETAMINOPHEN
     Indication: Product used for unknown indication
     Dosage: DOSE FORM: UNKNOWN. ROUTE: UNKNOWN
  10. ACETAMINOPHEN [Suspect]
     Active Substance: ACETAMINOPHEN
     Dosage: DOSE FORM: UNKNOWN. ROUTE: UNKNOWN
  11. ACETAMINOPHEN [Suspect]
     Active Substance: ACETAMINOPHEN
     Dosage: ROUTE: UNKNOWN
  12. ACETAMINOPHEN\CAFFEINE\CODEINE PHOSPHATE [Suspect]
     Active Substance: ACETAMINOPHEN\CAFFEINE\CODEINE PHOSPHATE
     Indication: Product used for unknown indication
     Dosage: ROUTE: UNKNOWN
  13. ACTEMRA [Suspect]
     Active Substance: TOCILIZUMAB
     Indication: Product used for unknown indication
     Dosage: ROUTE: UNKNOWN
  14. ALENDRONATE SODIUM [Suspect]
     Active Substance: ALENDRONATE SODIUM
     Indication: Product used for unknown indication
     Dosage: ROUTE: UNKNOWN
  15. ALENDRONATE SODIUM [Suspect]
     Active Substance: ALENDRONATE SODIUM
     Indication: Product used for unknown indication
     Dosage: DOSE FORM: UNKNOWN, ROUTE: UNKNOWN
  16. ALENDRONATE SODIUM [Suspect]
     Active Substance: ALENDRONATE SODIUM
     Dosage: ROUTE: UNKNOWN
  17. BORAGE OIL [Suspect]
     Active Substance: BORAGE OIL
     Indication: Product used for unknown indication
     Dosage: ROUTE: UNKNOWN
  18. CELEBREX [Suspect]
     Active Substance: CELECOXIB
     Indication: Product used for unknown indication
     Dosage: ROUTE: UNKNOWN
  19. CETIRIZINE [Suspect]
     Active Substance: CETIRIZINE HYDROCHLORIDE
     Indication: Product used for unknown indication
     Dosage: ROUTE: UNKNOWN
  20. CETIRIZINE HYDROCHLORIDE [Suspect]
     Active Substance: CETIRIZINE HYDROCHLORIDE
     Indication: Product used for unknown indication
     Dosage: ROUTE: UNKNOWN
  21. COSENTYX [Suspect]
     Active Substance: SECUKINUMAB
     Indication: Product used for unknown indication
  22. COSENTYX [Suspect]
     Active Substance: SECUKINUMAB
     Indication: Product used for unknown indication
     Dosage: ROUTE: UNKNOWN
  23. DESOXIMETASONE [Suspect]
     Active Substance: DESOXIMETASONE
     Indication: Product used for unknown indication
     Dosage: ROUTE: UNKNOWN
  24. DEXTROMETHORPHAN HYDROBROMIDE\PSEUDOEPHEDRINE HYDROCHLORIDE\TRIPROLIDI [Suspect]
     Active Substance: DEXTROMETHORPHAN HYDROBROMIDE\PSEUDOEPHEDRINE HYDROCHLORIDE\TRIPROLIDINE HYDROCHLORIDE
     Indication: Product used for unknown indication
     Dosage: ROUTE: UNKNOWN
  25. HUMIRA [Suspect]
     Active Substance: ADALIMUMAB
     Indication: Rheumatoid arthritis
     Dosage: DOSE FORM: SOLUTION SUBCUTANEOUS
  26. HUMIRA [Suspect]
     Active Substance: ADALIMUMAB
     Indication: Psoriatic arthropathy
  27. HUMIRA [Suspect]
     Active Substance: ADALIMUMAB
     Indication: Rheumatoid arthritis
  28. HUMIRA [Suspect]
     Active Substance: ADALIMUMAB
     Indication: Psoriatic arthropathy
  29. HUMIRA [Suspect]
     Active Substance: ADALIMUMAB
  30. HUMIRA [Suspect]
     Active Substance: ADALIMUMAB
  31. ISOPROPYL ALCOHOL [Suspect]
     Active Substance: ISOPROPYL ALCOHOL
     Indication: Product used for unknown indication
     Dosage: DOSE FORM: LIQUID TOPICAL, ROUTE:UNKNOWN
  32. LISINOPRIL [Suspect]
     Active Substance: LISINOPRIL
     Indication: Product used for unknown indication
     Dosage: ROUTE: UNKNOWN
  33. LYRICA [Suspect]
     Active Substance: PREGABALIN
     Indication: Product used for unknown indication
     Dosage: ROUTE: UNKNOWN
  34. METHOTREXATE [Suspect]
     Active Substance: METHOTREXATE
     Indication: Rheumatoid arthritis
  35. METHOTREXATE [Suspect]
     Active Substance: METHOTREXATE
  36. METHOTREXATE [Suspect]
     Active Substance: METHOTREXATE
     Dosage: ROUTE: UNKNOWN
  37. METHOTREXATE [Suspect]
     Active Substance: METHOTREXATE
     Dosage: ROUTE: UNKNOWN
  38. METHOTREXATE [Suspect]
     Active Substance: METHOTREXATE
  39. METHOTREXATE [Suspect]
     Active Substance: METHOTREXATE
  40. METHOTREXATE [Suspect]
     Active Substance: METHOTREXATE
  41. METHOTREXATE [Suspect]
     Active Substance: METHOTREXATE
  42. METHOTREXATE [Suspect]
     Active Substance: METHOTREXATE
  43. METHOTREXATE [Suspect]
     Active Substance: METHOTREXATE
  44. METHOTREXATE [Suspect]
     Active Substance: METHOTREXATE
  45. METHOTREXATE [Suspect]
     Active Substance: METHOTREXATE
     Dosage: ROUTE: UNKNOWN
  46. METHOTREXATE [Suspect]
     Active Substance: METHOTREXATE
  47. METHOTREXATE [Suspect]
     Active Substance: METHOTREXATE
     Dosage: ROUTE: UNKNOWN
  48. METHOTREXATE [Suspect]
     Active Substance: METHOTREXATE
  49. METHOTREXATE [Suspect]
     Active Substance: METHOTREXATE
  50. METHOTREXATE [Suspect]
     Active Substance: METHOTREXATE
     Dosage: ROUTE: INTRAVENOUS DRIP
  51. METHOTREXATE [Suspect]
     Active Substance: METHOTREXATE
  52. METHOTREXATE [Suspect]
     Active Substance: METHOTREXATE
  53. METHOTREXATE [Suspect]
     Active Substance: METHOTREXATE
     Dosage: ROUTE: UNKNOWN
  54. METHOTREXATE [Suspect]
     Active Substance: METHOTREXATE
     Dosage: ROUTE: UNKNOWN
  55. METHOTREXATE [Suspect]
     Active Substance: METHOTREXATE
     Dosage: ROUTE: UNKNOWN
  56. METHOTREXATE [Suspect]
     Active Substance: METHOTREXATE
  57. HYDROCORTISONE ACETATE [Suspect]
     Active Substance: HYDROCORTISONE ACETATE
     Indication: Product used for unknown indication
     Dosage: ROUTE: UNKNOWN
  58. HYDROCORTISONE BUTYRATE [Suspect]
     Active Substance: HYDROCORTISONE BUTYRATE
     Indication: Rheumatoid arthritis
     Dosage: ROUTE: OTHER
  59. HYDROCORTISONE BUTYRATE [Suspect]
     Active Substance: HYDROCORTISONE BUTYRATE
  60. HYDROCORTISONE BUTYRATE [Suspect]
     Active Substance: HYDROCORTISONE BUTYRATE
  61. HYDROCORTISONE SODIUM SUCCINATE [Suspect]
     Active Substance: HYDROCORTISONE SODIUM SUCCINATE
     Indication: Rheumatoid arthritis
     Dosage: ROUTE: UNKNOWN
  62. HYDROCORTISONE SODIUM SUCCINATE [Suspect]
     Active Substance: HYDROCORTISONE SODIUM SUCCINATE
     Indication: Rheumatoid arthritis
     Dosage: DOSE FORM: POWDER FOR SOLUTION
  63. HYDROXYCHLOROQUINE [Suspect]
     Active Substance: HYDROXYCHLOROQUINE
     Indication: Rheumatoid arthritis
     Dosage: ROUTE: UNKNOWN
  64. HYDROXYCHLOROQUINE [Suspect]
     Active Substance: HYDROXYCHLOROQUINE
  65. HYDROXYCHLOROQUINE [Suspect]
     Active Substance: HYDROXYCHLOROQUINE
     Dosage: ROUTE: UNKNOWN
  66. HYDROXYCHLOROQUINE [Suspect]
     Active Substance: HYDROXYCHLOROQUINE
  67. HYDROXYCHLOROQUINE [Suspect]
     Active Substance: HYDROXYCHLOROQUINE
  68. HYDROXYCHLOROQUINE [Suspect]
     Active Substance: HYDROXYCHLOROQUINE
     Dosage: ROUTE: UNKNOWN
  69. HYDROXYCHLOROQUINE [Suspect]
     Active Substance: HYDROXYCHLOROQUINE
  70. HYDROXYCHLOROQUINE [Suspect]
     Active Substance: HYDROXYCHLOROQUINE
     Dosage: ROUTE: UNKNOWN
  71. HYDROXYCHLOROQUINE SULFATE [Suspect]
     Active Substance: HYDROXYCHLOROQUINE SULFATE
     Indication: Systemic lupus erythematosus
  72. HYDROXYCHLOROQUINE SULFATE [Suspect]
     Active Substance: HYDROXYCHLOROQUINE SULFATE
     Indication: Rheumatoid arthritis
  73. HYDROXYCHLOROQUINE SULFATE [Suspect]
     Active Substance: HYDROXYCHLOROQUINE SULFATE
     Dosage: ROUTE: UNKNOWN
  74. HYDROXYCHLOROQUINE SULFATE [Suspect]
     Active Substance: HYDROXYCHLOROQUINE SULFATE
     Dosage: ROUTE: UNKNOWN
  75. HYDROXYCHLOROQUINE SULFATE [Suspect]
     Active Substance: HYDROXYCHLOROQUINE SULFATE
  76. HYDROXYCHLOROQUINE SULFATE [Suspect]
     Active Substance: HYDROXYCHLOROQUINE SULFATE
  77. HYDROXYCHLOROQUINE SULFATE [Suspect]
     Active Substance: HYDROXYCHLOROQUINE SULFATE
  78. HYDROXYCHLOROQUINE SULFATE [Suspect]
     Active Substance: HYDROXYCHLOROQUINE SULFATE
     Dosage: ROUTE: UNKNOWN
  79. HYDROXYCHLOROQUINE SULFATE [Suspect]
     Active Substance: HYDROXYCHLOROQUINE SULFATE
     Dosage: ROUTE: UNKNOWN
  80. HYDROXYCHLOROQUINE SULFATE [Suspect]
     Active Substance: HYDROXYCHLOROQUINE SULFATE
     Dosage: ROUTE: UNKNOWN
  81. HYDROXYCHLOROQUINE SULFATE [Suspect]
     Active Substance: HYDROXYCHLOROQUINE SULFATE
     Dosage: ROUTE: UNKNOWN
  82. HYDROXYCHLOROQUINE SULFATE [Suspect]
     Active Substance: HYDROXYCHLOROQUINE SULFATE
  83. HYDROXYCHLOROQUINE SULFATE [Suspect]
     Active Substance: HYDROXYCHLOROQUINE SULFATE
  84. HYDROXYCHLOROQUINE SULFATE [Suspect]
     Active Substance: HYDROXYCHLOROQUINE SULFATE
  85. HYDROXYCHLOROQUINE SULFATE [Suspect]
     Active Substance: HYDROXYCHLOROQUINE SULFATE
  86. HYDROXYCHLOROQUINE SULFATE [Suspect]
     Active Substance: HYDROXYCHLOROQUINE SULFATE
     Dosage: ROUTE: UNKNOWN
  87. HYDROXYCHLOROQUINE SULFATE [Suspect]
     Active Substance: HYDROXYCHLOROQUINE SULFATE
  88. HYDROXYCHLOROQUINE SULFATE [Suspect]
     Active Substance: HYDROXYCHLOROQUINE SULFATE
  89. HYDROXYCHLOROQUINE SULFATE [Suspect]
     Active Substance: HYDROXYCHLOROQUINE SULFATE
  90. HYDROXYCHLOROQUINE SULFATE [Suspect]
     Active Substance: HYDROXYCHLOROQUINE SULFATE
     Dosage: ROUTE: UNKNOWN
  91. HYDROXYCHLOROQUINE SULFATE [Suspect]
     Active Substance: HYDROXYCHLOROQUINE SULFATE
     Dosage: ROUTE: UNKNOWN
  92. HYDROXYCHLOROQUINE SULFATE [Suspect]
     Active Substance: HYDROXYCHLOROQUINE SULFATE
  93. INFLIXIMAB [Suspect]
     Active Substance: INFLIXIMAB
     Indication: Rheumatoid arthritis
     Dosage: ROUTE: INTRAVENOUS DRIP
  94. INFLIXIMAB [Suspect]
     Active Substance: INFLIXIMAB
     Indication: Psoriatic arthropathy
  95. INFLIXIMAB [Suspect]
     Active Substance: INFLIXIMAB
     Indication: Rheumatoid arthritis
     Dosage: ROUTE: INTRAVENOUS DRIP
  96. INFLIXIMAB [Suspect]
     Active Substance: INFLIXIMAB
     Indication: Psoriatic arthropathy
     Dosage: ROUTE: UNKNOWN
  97. INFLIXIMAB [Suspect]
     Active Substance: INFLIXIMAB
     Dosage: ROUTE: INTRAVENOUS DRIP
  98. INFLIXIMAB [Suspect]
     Active Substance: INFLIXIMAB
     Dosage: ROUTE: UNKNOWN
  99. PREDNISONE [Suspect]
     Active Substance: PREDNISONE
     Indication: Systemic lupus erythematosus
  100. PREDNISONE [Suspect]
     Active Substance: PREDNISONE
     Indication: Synovitis
     Dosage: ROUTE: UNKNOWN
  101. PREDNISONE [Suspect]
     Active Substance: PREDNISONE
     Indication: Rheumatoid arthritis
  102. PREDNISONE [Suspect]
     Active Substance: PREDNISONE
     Indication: Psoriatic arthropathy
     Dosage: ROUTE: UNKNOWN
  103. PREDNISONE [Suspect]
     Active Substance: PREDNISONE
     Indication: Pemphigus
  104. PREDNISONE [Suspect]
     Active Substance: PREDNISONE
     Indication: Condition aggravated
     Dosage: ROUTE: UNKNOWN
  105. PREDNISONE [Suspect]
     Active Substance: PREDNISONE
     Dosage: ROUTE: INTRAVENOUS DRIP
  106. PREDNISONE [Suspect]
     Active Substance: PREDNISONE
  107. PREDNISONE [Suspect]
     Active Substance: PREDNISONE
     Dosage: ROUTE: UNKNOWN
  108. PREDNISONE [Suspect]
     Active Substance: PREDNISONE
     Dosage: ROUTE: UNKNOWN
  109. PREDNISONE [Suspect]
     Active Substance: PREDNISONE
     Dosage: ROUTE: UNKNOWN
  110. PSEUDOEPHEDRINE [Suspect]
     Active Substance: PSEUDOEPHEDRINE
     Indication: Product used for unknown indication
     Dosage: ROUTE: UNKNOWN
  111. PSEUDOEPHEDRINE HYDROCHLORIDE [Suspect]
     Active Substance: PSEUDOEPHEDRINE HYDROCHLORIDE
     Indication: Rheumatoid arthritis
     Dosage: ROUTE: UNKNOWN
  112. PSEUDOEPHEDRINE HYDROCHLORIDE [Suspect]
     Active Substance: PSEUDOEPHEDRINE HYDROCHLORIDE
     Dosage: ROUTE: UNKNOWN
  113. PSEUDOEPHEDRINE HYDROCHLORIDE [Suspect]
     Active Substance: PSEUDOEPHEDRINE HYDROCHLORIDE
     Dosage: ROUTE: UNKNOWN
  114. RAMIPRIL [Suspect]
     Active Substance: RAMIPRIL
     Indication: Product used for unknown indication
     Dosage: ROUTE: UNKNOWN
  115. RAMIPRIL [Suspect]
     Active Substance: RAMIPRIL
     Dosage: ROUTE: UNKNOWN
  116. CETIRIZINE HYDROCHLORIDE [Suspect]
     Active Substance: CETIRIZINE HYDROCHLORIDE
     Indication: Urticaria
  117. CETIRIZINE HYDROCHLORIDE [Suspect]
     Active Substance: CETIRIZINE HYDROCHLORIDE
     Indication: Rheumatoid arthritis
     Dosage: ROUTE: UNKNOWN
  118. CETIRIZINE HYDROCHLORIDE [Suspect]
     Active Substance: CETIRIZINE HYDROCHLORIDE
     Dosage: ROUTE: UNKNOWN
  119. CETIRIZINE HYDROCHLORIDE [Suspect]
     Active Substance: CETIRIZINE HYDROCHLORIDE
  120. CETIRIZINE HYDROCHLORIDE [Suspect]
     Active Substance: CETIRIZINE HYDROCHLORIDE
  121. CETIRIZINE HYDROCHLORIDE [Suspect]
     Active Substance: CETIRIZINE HYDROCHLORIDE
     Dosage: ROUTE: UNKNOWN
  122. CETIRIZINE HYDROCHLORIDE [Suspect]
     Active Substance: CETIRIZINE HYDROCHLORIDE
  123. CETIRIZINE HYDROCHLORIDE\PSEUDOEPHEDRINE HYDROCHLORIDE [Suspect]
     Active Substance: CETIRIZINE HYDROCHLORIDE\PSEUDOEPHEDRINE HYDROCHLORIDE
     Indication: Product used for unknown indication
     Dosage: DOSE FORM: EXTENDED RELEASE TABLET, ROUTE: UNKNOWN
  124. REMICADE [Suspect]
     Active Substance: INFLIXIMAB
     Indication: Rheumatoid arthritis
  125. REMICADE [Suspect]
     Active Substance: INFLIXIMAB
     Indication: Rheumatoid arthritis
     Dosage: DOSE FORM: POWDER FOR SOLUTION INTRAVENOUS, ROUTE: UNKNOWN
  126. RITUXIMAB [Suspect]
     Active Substance: RITUXIMAB
     Indication: Rheumatoid arthritis
     Dosage: ROUTE: UNKNOWN
  127. RITUXIMAB [Suspect]
     Active Substance: RITUXIMAB
     Dosage: ROUTE: INTRAVENOUS DRIP
  128. RITUXIMAB [Suspect]
     Active Substance: RITUXIMAB
     Dosage: ROUTE: UNKNOWN
  129. RITUXIMAB [Suspect]
     Active Substance: RITUXIMAB
     Dosage: ROUTE: INTRAVENOUS DRIP
  130. RITUXIMAB [Suspect]
     Active Substance: RITUXIMAB
  131. RITUXIMAB [Suspect]
     Active Substance: RITUXIMAB
  132. RITUXIMAB [Suspect]
     Active Substance: RITUXIMAB
     Dosage: ROUTE: INTRAVENOUS DRIP
  133. RITUXIMAB [Suspect]
     Active Substance: RITUXIMAB
     Indication: Rheumatoid arthritis
     Dosage: ROUTE: UNKNOWN
  134. DIETARY SUPPLEMENT\HERBALS [Suspect]
     Active Substance: DIETARY SUPPLEMENT\HERBALS
     Indication: Product used for unknown indication
     Dosage: ROUTE: UNKNOWN
  135. APREMILAST [Suspect]
     Active Substance: APREMILAST
     Indication: Product used for unknown indication
     Dosage: ROUTE: UNKNOWN
  136. DICLOFENAC SODIUM [Suspect]
     Active Substance: DICLOFENAC SODIUM
     Indication: Rheumatoid arthritis
  137. DICLOFENAC SODIUM [Suspect]
     Active Substance: DICLOFENAC SODIUM
     Dosage: ROUTE: UNKNOWN
  138. DICLOFENAC SODIUM [Suspect]
     Active Substance: DICLOFENAC SODIUM
     Dosage: ROUTE: UNKNOWN
  139. DICLOFENAC SODIUM [Suspect]
     Active Substance: DICLOFENAC SODIUM
     Dosage: ROUTE: UNKNOWN
  140. DICLOFENAC SODIUM [Suspect]
     Active Substance: DICLOFENAC SODIUM
     Dosage: ROUTE: OPHTHALMIC
  141. DICLOFENAC SODIUM [Suspect]
     Active Substance: DICLOFENAC SODIUM
     Dosage: ROUTE: UNKNOWN
  142. DICLOFENAC SODIUM [Suspect]
     Active Substance: DICLOFENAC SODIUM
     Dosage: ROUTE: UNKNOWN
  143. DICLOFENAC SODIUM [Suspect]
     Active Substance: DICLOFENAC SODIUM
     Dosage: ROUTE: OPHTHALMIC
  144. DICLOFENAC SODIUM [Suspect]
     Active Substance: DICLOFENAC SODIUM
  145. DICLOFENAC SODIUM [Suspect]
     Active Substance: DICLOFENAC SODIUM
  146. DICLOFENAC SODIUM [Suspect]
     Active Substance: DICLOFENAC SODIUM
     Dosage: ROUTE: UNKNOWN
  147. DICLOFENAC SODIUM [Suspect]
     Active Substance: DICLOFENAC SODIUM
     Dosage: ROUTE: OTHER
  148. DICLOFENAC SODIUM [Suspect]
     Active Substance: DICLOFENAC SODIUM
     Dosage: ROUTE: OPHTHALMIC
  149. DICLOFENAC SODIUM [Suspect]
     Active Substance: DICLOFENAC SODIUM
     Dosage: ROUTE: OPHTHALMIC
  150. DICLOFENAC SODIUM [Suspect]
     Active Substance: DICLOFENAC SODIUM
     Indication: Rheumatoid arthritis
     Dosage: ROUTE: UNKNOWN
  151. HYDROCORTISONE [Suspect]
     Active Substance: HYDROCORTISONE
     Indication: Rheumatoid arthritis
     Dosage: DOSE FORM: UNKNOWN, ROUTE: UNKNOWN
  152. HYDROCORTISONE [Suspect]
     Active Substance: HYDROCORTISONE
     Dosage: DOSE FORM: UNKNOWN
  153. HYDROCORTISONE [Suspect]
     Active Substance: HYDROCORTISONE
     Dosage: DOSE FORM: UNKNOWN, ROUTE: UNKNOWN
  154. HYDROCORTISONE [Suspect]
     Active Substance: HYDROCORTISONE
     Dosage: DOSE FORM: UNKNOWN
  155. HYDROCORTISONE [Suspect]
     Active Substance: HYDROCORTISONE
     Dosage: DOSE FORM: UNKNOWN, ROUTE: UNKNOWN
  156. HYDROCORTISONE [Suspect]
     Active Substance: HYDROCORTISONE
     Dosage: DOSE FORM: UNKNOWN, ROUTE: UNKNOWN
  157. HYDROCORTISONE [Suspect]
     Active Substance: HYDROCORTISONE
     Indication: Rheumatoid arthritis
  158. MOXIFLOXACIN HYDROCHLORIDE [Suspect]
     Active Substance: MOXIFLOXACIN HYDROCHLORIDE
     Indication: Product used for unknown indication
     Dosage: DOSE FORM: SOLUTION OPHTHALMIC
  159. MYCOPHENOLATE MOFETIL [Suspect]
     Active Substance: MYCOPHENOLATE MOFETIL
     Indication: Product used for unknown indication
  160. PANTOPRAZOLE SODIUM [Suspect]
     Active Substance: PANTOPRAZOLE SODIUM
     Indication: Product used for unknown indication
     Dosage: DOSE FORM: TABLET (DELAYED RELEASE), ROUTE: UNKNOWN
  161. PANTOPRAZOLE SODIUM [Suspect]
     Active Substance: PANTOPRAZOLE SODIUM
     Indication: Product used for unknown indication
     Dosage: DOSE FORM: UNKNOWN
  162. PANTOPRAZOLE SODIUM [Suspect]
     Active Substance: PANTOPRAZOLE SODIUM
     Dosage: DOSE FORM: UNKNOWN, ROUTE: UNKNOWN
  163. PREGABALIN [Suspect]
     Active Substance: PREGABALIN
     Indication: Product used for unknown indication
     Dosage: ROUTE: UNKNOWN
  164. SIMPONI [Suspect]
     Active Substance: GOLIMUMAB
     Indication: Rheumatoid arthritis
     Dosage: DOSE FORM: SOLUTION SUBCUTANEOUS, ROUTE: UNKNOWN
  165. SIMPONI [Suspect]
     Active Substance: GOLIMUMAB
     Indication: Rheumatoid arthritis
  166. SIMPONI [Suspect]
     Active Substance: GOLIMUMAB
     Dosage: ROUTE: UNKNOWN
  167. SIMPONI [Suspect]
     Active Substance: GOLIMUMAB
  168. STELARA [Suspect]
     Active Substance: USTEKINUMAB
     Indication: Product used for unknown indication
     Dosage: DOSE FORM: SOLUTION SUBCUTANEOUS, ROUTE: UNKNOWN
  169. SULFASALAZINE [Suspect]
     Active Substance: SULFASALAZINE
     Indication: Rheumatoid arthritis
  170. SULFASALAZINE [Suspect]
     Active Substance: SULFASALAZINE
  171. SULFASALAZINE [Suspect]
     Active Substance: SULFASALAZINE
  172. SULFASALAZINE [Suspect]
     Active Substance: SULFASALAZINE
  173. SULFASALAZINE [Suspect]
     Active Substance: SULFASALAZINE
  174. SULFASALAZINE [Suspect]
     Active Substance: SULFASALAZINE
  175. SULFASALAZINE [Suspect]
     Active Substance: SULFASALAZINE
  176. SULFASALAZINE [Suspect]
     Active Substance: SULFASALAZINE
  177. SULFASALAZINE [Suspect]
     Active Substance: SULFASALAZINE
  178. SULFASALAZINE [Suspect]
     Active Substance: SULFASALAZINE
     Dosage: ROUTE: UNKNOWN
  179. SULFASALAZINE [Suspect]
     Active Substance: SULFASALAZINE
     Dosage: ROUTE: UNKNOWN
  180. SULFASALAZINE [Suspect]
     Active Substance: SULFASALAZINE
     Dosage: ROUTE: UNKNOWN
  181. SULFASALAZINE [Suspect]
     Active Substance: SULFASALAZINE
     Dosage: ROUTE: UNKNOWN
  182. SULFASALAZINE [Suspect]
     Active Substance: SULFASALAZINE
  183. SULFASALAZINE [Suspect]
     Active Substance: SULFASALAZINE
  184. SULFASALAZINE [Suspect]
     Active Substance: SULFASALAZINE
  185. SULFASALAZINE [Suspect]
     Active Substance: SULFASALAZINE
  186. SULFASALAZINE [Suspect]
     Active Substance: SULFASALAZINE
  187. SULFASALAZINE [Suspect]
     Active Substance: SULFASALAZINE
  188. SULFASALAZINE [Suspect]
     Active Substance: SULFASALAZINE
  189. SULFASALAZINE [Suspect]
     Active Substance: SULFASALAZINE
  190. SULFASALAZINE [Suspect]
     Active Substance: SULFASALAZINE
     Dosage: ROUTE: UNKNOWN
  191. SULFASALAZINE [Suspect]
     Active Substance: SULFASALAZINE
  192. SULFASALAZINE [Suspect]
     Active Substance: SULFASALAZINE
     Dosage: ROUTE: UNKNOWN
  193. SULFASALAZINE [Suspect]
     Active Substance: SULFASALAZINE
  194. SULFASALAZINE [Suspect]
     Active Substance: SULFASALAZINE
  195. SULFASALAZINE [Suspect]
     Active Substance: SULFASALAZINE
  196. SULFASALAZINE [Suspect]
     Active Substance: SULFASALAZINE
  197. ADVIL [Suspect]
     Active Substance: IBUPROFEN
     Indication: Product used for unknown indication
     Dosage: ROUTE: UNKNOWN
  198. METHOTREXATE [Suspect]
     Active Substance: METHOTREXATE
     Indication: Rheumatoid arthritis
  199. METHOTREXATE [Suspect]
     Active Substance: METHOTREXATE
  200. METHOTREXATE [Suspect]
     Active Substance: METHOTREXATE
     Dosage: ROUTE: INTRAVENOUS DRIP
  201. METHOTREXATE [Suspect]
     Active Substance: METHOTREXATE
  202. METHOTREXATE [Suspect]
     Active Substance: METHOTREXATE
  203. METHOTREXATE [Suspect]
     Active Substance: METHOTREXATE
  204. METHOTREXATE [Suspect]
     Active Substance: METHOTREXATE
     Dosage: ROUTE: UNKNOWN
  205. METHOTREXATE [Suspect]
     Active Substance: METHOTREXATE
  206. METHOTREXATE [Suspect]
     Active Substance: METHOTREXATE
  207. METHOTREXATE [Suspect]
     Active Substance: METHOTREXATE
  208. METHOTREXATE [Suspect]
     Active Substance: METHOTREXATE
  209. METHOTREXATE [Suspect]
     Active Substance: METHOTREXATE
  210. METHOTREXATE [Suspect]
     Active Substance: METHOTREXATE
  211. METHOTREXATE [Suspect]
     Active Substance: METHOTREXATE
  212. METHOTREXATE [Suspect]
     Active Substance: METHOTREXATE
  213. METHOTREXATE [Suspect]
     Active Substance: METHOTREXATE
  214. METHOTREXATE [Suspect]
     Active Substance: METHOTREXATE
  215. METHOTREXATE [Suspect]
     Active Substance: METHOTREXATE
  216. METHOTREXATE [Suspect]
     Active Substance: METHOTREXATE
  217. METHOTREXATE [Suspect]
     Active Substance: METHOTREXATE
     Dosage: ROUTE: UNKNOWN
  218. METHOTREXATE [Suspect]
     Active Substance: METHOTREXATE
  219. METHOTREXATE [Suspect]
     Active Substance: METHOTREXATE
  220. METHOTREXATE [Suspect]
     Active Substance: METHOTREXATE
  221. METHOTREXATE [Suspect]
     Active Substance: METHOTREXATE
  222. METHOTREXATE [Suspect]
     Active Substance: METHOTREXATE
  223. METHOTREXATE [Suspect]
     Active Substance: METHOTREXATE
     Dosage: ROUTE: UNKNOWN
  224. METHOTREXATE [Suspect]
     Active Substance: METHOTREXATE
  225. METHOTREXATE [Suspect]
     Active Substance: METHOTREXATE
  226. METHOTREXATE [Suspect]
     Active Substance: METHOTREXATE
     Dosage: ROUTE: UNKNOWN
  227. METHOTREXATE [Suspect]
     Active Substance: METHOTREXATE
  228. METHOTREXATE [Suspect]
     Active Substance: METHOTREXATE
     Dosage: ROUTE: UNKNOWN
  229. METHOTREXATE [Suspect]
     Active Substance: METHOTREXATE
  230. METHOTREXATE [Suspect]
     Active Substance: METHOTREXATE
  231. METHOTREXATE [Suspect]
     Active Substance: METHOTREXATE
  232. METHOTREXATE [Suspect]
     Active Substance: METHOTREXATE
  233. METHOTREXATE [Suspect]
     Active Substance: METHOTREXATE
  234. METHOTREXATE [Suspect]
     Active Substance: METHOTREXATE
  235. METHOTREXATE [Suspect]
     Active Substance: METHOTREXATE
     Dosage: ROUTE: UNKNOWN
  236. METHOTREXATE [Suspect]
     Active Substance: METHOTREXATE
     Dosage: ROUTE: UNKNOWN
  237. METHOTREXATE [Suspect]
     Active Substance: METHOTREXATE
     Dosage: ROUTE: INTRAVENOUS DRIP
  238. METHOTREXATE [Suspect]
     Active Substance: METHOTREXATE
  239. METHOTREXATE [Suspect]
     Active Substance: METHOTREXATE
  240. METHYLPREDNISOLONE SODIUM SUCCINATE [Suspect]
     Active Substance: METHYLPREDNISOLONE SODIUM SUCCINATE
     Indication: Product used for unknown indication
     Dosage: ROUTE: UNKNOWN
  241. MESALAMINE [Suspect]
     Active Substance: MESALAMINE
     Indication: Product used for unknown indication
     Dosage: DOSE FORM: TABLET (DELAYED AND EXTENDED RELEASE)
  242. NAPROXEN [Suspect]
     Active Substance: NAPROXEN
     Indication: Product used for unknown indication
     Dosage: ROUTE: UNKNOWN
  243. NAPROXEN SODIUM [Suspect]
     Active Substance: NAPROXEN SODIUM
     Indication: Rheumatoid arthritis
     Dosage: ROUTE: UNKNOWN
  244. NAPROXEN SODIUM [Suspect]
     Active Substance: NAPROXEN SODIUM
     Dosage: ROUTE: UNKNOWN
  245. NEOMYCIN [Suspect]
     Active Substance: NEOMYCIN
     Indication: Product used for unknown indication
     Dosage: ROUTE: UNKNOWN
  246. ORENCIA [Suspect]
     Active Substance: ABATACEPT
     Indication: Rheumatoid arthritis
  247. ORENCIA [Suspect]
     Active Substance: ABATACEPT
     Indication: Psoriatic arthropathy
  248. ORENCIA [Suspect]
     Active Substance: ABATACEPT
  249. ORENCIA [Suspect]
     Active Substance: ABATACEPT
  250. ORENCIA [Suspect]
     Active Substance: ABATACEPT
  251. ORENCIA [Suspect]
     Active Substance: ABATACEPT
  252. ORENCIA [Suspect]
     Active Substance: ABATACEPT
  253. OTEZLA [Suspect]
     Active Substance: APREMILAST
     Indication: Product used for unknown indication
     Dosage: ROUTE: UNKNOWN
  254. OXYCODONE [Suspect]
     Active Substance: OXYCODONE
     Indication: Product used for unknown indication
     Dosage: DOSE FORM: UNKNOWN
  255. OXYCODONE [Suspect]
     Active Substance: OXYCODONE
     Dosage: DOSE FORM: UNKNOWN, ROUTE: UNKNOWN
  256. OXYCODONE [Suspect]
     Active Substance: OXYCODONE
     Dosage: DOSE FORM: UNKNOWN, ROUTE: UNKNOWN
  257. OXYCODONE [Suspect]
     Active Substance: OXYCODONE
     Dosage: DOSE FORM: UNKNOWN, ROUTE: UNKNOWN
  258. OXYCODONE TEREPHTHALATE [Suspect]
     Active Substance: OXYCODONE TEREPHTHALATE
     Indication: Product used for unknown indication
     Dosage: ROUTE: UNKNOWN
  259. PERIOGARD [Suspect]
     Active Substance: CHLORHEXIDINE GLUCONATE
     Indication: Product used for unknown indication
  260. PERIOGARD [Suspect]
     Active Substance: CHLORHEXIDINE GLUCONATE
     Dosage: ROUTE: UNKNOWN
  261. PERIOGARD [Suspect]
     Active Substance: CHLORHEXIDINE GLUCONATE
  262. PERIOGARD [Suspect]
     Active Substance: CHLORHEXIDINE GLUCONATE
     Dosage: ROUTE: UNKNOWN
  263. PHTHALYLSULFATHIAZOLE [Suspect]
     Active Substance: PHTHALYLSULFATHIAZOLE
     Indication: Rheumatoid arthritis
     Dosage: ROUTE: UNKNOWN
  264. PHTHALYLSULFATHIAZOLE [Suspect]
     Active Substance: PHTHALYLSULFATHIAZOLE
  265. PHTHALYLSULFATHIAZOLE [Suspect]
     Active Substance: PHTHALYLSULFATHIAZOLE
  266. PHTHALYLSULFATHIAZOLE [Suspect]
     Active Substance: PHTHALYLSULFATHIAZOLE
     Dosage: ROUTE: UNKNOWN
  267. PHTHALYLSULFATHIAZOLE [Suspect]
     Active Substance: PHTHALYLSULFATHIAZOLE
  268. PHTHALYLSULFATHIAZOLE [Suspect]
     Active Substance: PHTHALYLSULFATHIAZOLE
  269. PHTHALYLSULFATHIAZOLE [Suspect]
     Active Substance: PHTHALYLSULFATHIAZOLE
  270. PHTHALYLSULFATHIAZOLE [Suspect]
     Active Substance: PHTHALYLSULFATHIAZOLE
  271. PHTHALYLSULFATHIAZOLE [Suspect]
     Active Substance: PHTHALYLSULFATHIAZOLE
     Dosage: ROUTE: INTRAVENOUS DRIP
  272. PHTHALYLSULFATHIAZOLE [Suspect]
     Active Substance: PHTHALYLSULFATHIAZOLE
  273. PHTHALYLSULFATHIAZOLE [Suspect]
     Active Substance: PHTHALYLSULFATHIAZOLE
  274. PHTHALYLSULFATHIAZOLE [Suspect]
     Active Substance: PHTHALYLSULFATHIAZOLE
  275. PHTHALYLSULFATHIAZOLE [Suspect]
     Active Substance: PHTHALYLSULFATHIAZOLE
  276. PHTHALYLSULFATHIAZOLE [Suspect]
     Active Substance: PHTHALYLSULFATHIAZOLE
     Dosage: ROUTE: UNKNOWN
  277. PHTHALYLSULFATHIAZOLE [Suspect]
     Active Substance: PHTHALYLSULFATHIAZOLE
     Dosage: ROUTE: INTRAVENOUS DRIP
  278. PHTHALYLSULFATHIAZOLE [Suspect]
     Active Substance: PHTHALYLSULFATHIAZOLE
     Dosage: ROUTE: UNKNOWN
  279. PHTHALYLSULFATHIAZOLE [Suspect]
     Active Substance: PHTHALYLSULFATHIAZOLE
  280. PHTHALYLSULFATHIAZOLE [Suspect]
     Active Substance: PHTHALYLSULFATHIAZOLE
  281. PLAQUENIL [Suspect]
     Active Substance: HYDROXYCHLOROQUINE SULFATE
     Indication: Product used for unknown indication
     Dosage: ROUTE: UNKNOWN
  282. PREDNISOLONE [Suspect]
     Active Substance: PREDNISOLONE
     Indication: Product used for unknown indication
     Dosage: ROUTE: UNKNOWN
  283. PREDNISONE [Suspect]
     Active Substance: PREDNISONE
     Indication: Systemic lupus erythematosus
  284. PREDNISONE [Suspect]
     Active Substance: PREDNISONE
     Indication: Synovitis
  285. PREDNISONE [Suspect]
     Active Substance: PREDNISONE
     Indication: Rheumatoid arthritis
  286. PREDNISONE [Suspect]
     Active Substance: PREDNISONE
     Indication: Psoriatic arthropathy
  287. PREDNISONE [Suspect]
     Active Substance: PREDNISONE
     Indication: Pemphigus
  288. PREDNISONE [Suspect]
     Active Substance: PREDNISONE
     Indication: Condition aggravated
  289. SULFAMETHOXAZOLE [Suspect]
     Active Substance: SULFAMETHOXAZOLE
     Indication: Product used for unknown indication
  290. SULFAMETHOXAZOLE\TRIMETHOPRIM [Suspect]
     Active Substance: SULFAMETHOXAZOLE\TRIMETHOPRIM
     Indication: Product used for unknown indication
  291. SULFAMETHOXAZOLE\TRIMETHOPRIM [Suspect]
     Active Substance: SULFAMETHOXAZOLE\TRIMETHOPRIM
     Dosage: ROUTE: UNKNOWN
  292. SULFASALAZINE [Suspect]
     Active Substance: SULFASALAZINE
     Indication: Rheumatoid arthritis
     Dosage: ROUTE: UNKNOWN
  293. TRIAMCINOLONE ACETONIDE [Suspect]
     Active Substance: TRIAMCINOLONE ACETONIDE
     Indication: Rheumatoid arthritis
     Dosage: DOSE FORM: SUSPENSION INTRA ARTICULAR
  294. VITAMIN C [Suspect]
     Active Substance: ASCORBIC ACID
     Indication: Product used for unknown indication
     Dosage: ROUTE: UNKNOWN
  295. VITAMIN C [Suspect]
     Active Substance: ASCORBIC ACID
     Dosage: ROUTE: UNKNOWN
  296. PREDNISONE [Suspect]
     Active Substance: PREDNISONE
     Indication: Rheumatoid arthritis
  297. XELJANZ [Suspect]
     Active Substance: TOFACITINIB CITRATE
     Indication: Rheumatoid arthritis
     Dosage: ROUTE: UNKNOWN
  298. XELJANZ [Suspect]
     Active Substance: TOFACITINIB CITRATE
     Indication: Rheumatoid arthritis
  299. XELJANZ [Suspect]
     Active Substance: TOFACITINIB CITRATE
     Dosage: ROUTE: UNKNOWN
  300. XELJANZ [Suspect]
     Active Substance: TOFACITINIB CITRATE
     Dosage: ROUTE: UNKNOWN
  301. XELJANZ [Suspect]
     Active Substance: TOFACITINIB CITRATE
     Dosage: ROUTE: UNKNOWN
  302. XELJANZ [Suspect]
     Active Substance: TOFACITINIB CITRATE
     Dosage: ROUTE: UNKNOWN
  303. XELJANZ [Suspect]
     Active Substance: TOFACITINIB CITRATE
     Dosage: ROUTE: UNKNOWN
  304. DICLOFENAC [Suspect]
     Active Substance: DICLOFENAC
     Indication: Product used for unknown indication
     Dosage: DOSE FORM: UNKNOWN, ROUTE: OPHTHALMIC

REACTIONS (12)
  - Rheumatic fever [Fatal]
  - Rash [Fatal]
  - Retinitis [Fatal]
  - Sleep disorder due to general medical condition, insomnia type [Fatal]
  - Subcutaneous drug absorption impaired [Fatal]
  - Pyrexia [Fatal]
  - Red blood cell sedimentation rate increased [Fatal]
  - Sinusitis [Fatal]
  - Pustular psoriasis [Fatal]
  - Stomatitis [Fatal]
  - Rash vesicular [Fatal]
  - Psoriasis [Fatal]
